FAERS Safety Report 23149485 (Version 1)
Quarter: 2023Q4

REPORT INFORMATION
  Report Type: Spontaneous
  Country: CN (occurrence: CN)
  Receive Date: 20231106
  Receipt Date: 20231106
  Transmission Date: 20240110
  Serious: Yes (Hospitalization)
  Sender: FDA-Public Use
  Company Number: CN-ABBVIE-5474582

PATIENT
  Age: 62 Year
  Weight: 69 kg

DRUGS (2)
  1. HUMIRA [Suspect]
     Active Substance: ADALIMUMAB
     Indication: Ankylosing spondylitis
     Dosage: DOSAGE TEXT- 40 MILLIGRAM
     Route: 058
     Dates: start: 20230505, end: 20230705
  2. APREMILAST [Suspect]
     Active Substance: APREMILAST
     Indication: Psoriasis
     Dosage: 40 MILLIGRAM
     Route: 065
     Dates: start: 20230505, end: 20230705

REACTIONS (2)
  - Escherichia urinary tract infection [Recovering/Resolving]
  - White blood cells urine positive [Unknown]

NARRATIVE: CASE EVENT DATE: 20230705
